FAERS Safety Report 4477058-7 (Version None)
Quarter: 2004Q4

REPORT INFORMATION
  Report Type: 
  Country: None (occurrence: None)
  Receive Date: 20041018
  Receipt Date: 20041001
  Transmission Date: 20050328
  Serious: Yes (Hospitalization)
  Sender: FDA-Public Use
  Company Number: PHRM2004FR02964

PATIENT
  Age: 80 Year
  Sex: Female

DRUGS (8)
  1. FEMARA [Suspect]
     Indication: BREAST CANCER FEMALE
     Dosage: 2.5 MG, QD
     Route: 048
     Dates: start: 20040401, end: 20040901
  2. ISOPTIN [Concomitant]
     Indication: CORONARY ARTERY INSUFFICIENCY
     Dosage: 240 MG, QD
  3. PREVISCAN [Concomitant]
  4. DIAMICRON [Concomitant]
     Indication: DIABETES MELLITUS NON-INSULIN-DEPENDENT
     Dosage: 30 MG, TID
     Route: 048
  5. BRONCHODUAL [Concomitant]
  6. TRINITRINE [Concomitant]
     Dosage: 10 MG, QD
  7. VASTEN [Concomitant]
     Dosage: 40 MG, QD
     Route: 048
  8. ADANCOR [Concomitant]
     Dosage: 2 DF DAILY
     Route: 048

REACTIONS (10)
  - ANAEMIA [None]
  - C-REACTIVE PROTEIN INCREASED [None]
  - DYSPNOEA EXERTIONAL [None]
  - HYPOCAPNIA [None]
  - HYPOXIA [None]
  - INFLAMMATION [None]
  - INTERSTITIAL LUNG DISEASE [None]
  - LUNG CREPITATION [None]
  - LUNG INFILTRATION [None]
  - PLEURAL EFFUSION [None]
